FAERS Safety Report 7590570-7 (Version None)
Quarter: 2011Q3

REPORT INFORMATION
  Report Type: 
  Country: None (occurrence: None)
  Receive Date: 20110705
  Receipt Date: 20110623
  Transmission Date: 20111222
  Serious: Yes (Hospitalization, Other)
  Sender: FDA-Public Use
  Company Number: US-ELI_LILLY_AND_COMPANY-US201007004860

PATIENT
  Sex: Female

DRUGS (35)
  1. FORTEO [Suspect]
     Dosage: 20 UG, QD
     Route: 065
  2. PREDNISONE [Concomitant]
     Dosage: 10 MG, WEEKLY (1/W)
     Route: 065
  3. ZOLOFT [Concomitant]
  4. SPIRIVA [Concomitant]
  5. MULTIPLE VITAMINS [Concomitant]
  6. OXYGEN [Concomitant]
     Dosage: UNK L, UNK
  7. FORTEO [Suspect]
     Dosage: 20 UG, DAILY (1/D)
  8. AMLODIPINE BESYLATE [Concomitant]
     Indication: BLOOD PRESSURE
  9. THEO-DUR [Concomitant]
  10. DULCOLAX [Concomitant]
  11. OXYCODONE HCL [Concomitant]
  12. FORTEO [Suspect]
     Dosage: 20 UG, QD
     Dates: end: 20110601
  13. LIPITOR [Concomitant]
  14. SINGULAIR [Concomitant]
  15. POTASSIUM CHLORIDE [Concomitant]
  16. PREDNISONE [Concomitant]
     Dosage: 20 MG, WEEKLY (1/W)
     Route: 065
  17. AMBIEN [Concomitant]
  18. ALBUTEROL SULFATE AUTOHALER [Concomitant]
  19. GABAPENTIN [Concomitant]
  20. NYSTATIN [Concomitant]
  21. FORTEO [Suspect]
     Indication: OSTEOPOROSIS
     Dosage: 20 UG, DAILY (1/D)
     Route: 065
     Dates: start: 20100622
  22. TRAZODONE HCL [Concomitant]
  23. FUROSEMIDE [Concomitant]
  24. OXYCONTIN [Concomitant]
  25. OMEPRAZOLE [Concomitant]
  26. LACTULOSE [Concomitant]
  27. CALCIUM CARBONATE [Concomitant]
  28. PREDNISONE [Concomitant]
     Dosage: 20 MG, WEEKLY (1/W)
     Route: 065
  29. MAGNESIUM OXIDE [Concomitant]
  30. XANAX [Concomitant]
  31. ADVAIR DISKUS 100/50 [Concomitant]
  32. MONTELUKAST SODIUM [Concomitant]
  33. AMLODIPINE [Concomitant]
  34. VITAMIN D [Concomitant]
  35. CALCIUM CITRATE W/VITAMIN D NOS [Concomitant]

REACTIONS (23)
  - VISUAL ACUITY REDUCED [None]
  - PARAESTHESIA [None]
  - OEDEMA PERIPHERAL [None]
  - BACK PAIN [None]
  - ASTHENIA [None]
  - HYPERTENSION [None]
  - NAUSEA [None]
  - URINARY TRACT INFECTION [None]
  - BLOOD POTASSIUM DECREASED [None]
  - CHRONIC OBSTRUCTIVE PULMONARY DISEASE [None]
  - CONTUSION [None]
  - VOMITING [None]
  - ABDOMINAL PAIN UPPER [None]
  - CATARACT [None]
  - BLOOD CALCIUM INCREASED [None]
  - ARTHRALGIA [None]
  - MUSCLE SPASMS [None]
  - EMPHYSEMA [None]
  - COMPRESSION FRACTURE [None]
  - PANCREATITIS [None]
  - BLOOD MAGNESIUM DECREASED [None]
  - NODULE [None]
  - MEMORY IMPAIRMENT [None]
